FAERS Safety Report 6328713-5 (Version None)
Quarter: 2009Q3

REPORT INFORMATION
  Report Type: 
  Country: None (occurrence: None)
  Receive Date: 20090826
  Receipt Date: 20090814
  Transmission Date: 20100115
  Serious: Yes (Other)
  Sender: FDA-Public Use
  Company Number: MX-PFIZER INC-2009206000

PATIENT
  Age: 39 Year

DRUGS (9)
  1. MARAVIROC [Suspect]
     Indication: HIV INFECTION
     Dosage: 150 MG, 2X/DAY
     Route: 048
     Dates: start: 20081204
  2. RITONAVIR [Concomitant]
     Dosage: 100 MG, UNK
     Route: 048
     Dates: start: 20081204
  3. ETRAVIRINE [Concomitant]
     Dosage: 200 MG, UNK
     Route: 048
     Dates: start: 20081204
  4. DARUNAVIR [Concomitant]
     Dosage: UNK
     Route: 048
     Dates: start: 20081204
  5. EMTRICITABINE [Concomitant]
     Dosage: 200-300 MG BID
     Route: 048
     Dates: start: 20081215
  6. CLARITHROMYCIN [Concomitant]
     Dosage: 500 MG, 2X/DAY
     Route: 048
     Dates: start: 20080718
  7. CALAMINE/ZINC OXIDE [Concomitant]
     Dosage: UNK
     Route: 061
     Dates: start: 20090225
  8. MYCOSPOR [Concomitant]
     Dosage: UNK
     Route: 061
     Dates: start: 20090223
  9. DERMOPLAST [Concomitant]
     Dosage: UNK
     Route: 061
     Dates: start: 20090223

REACTIONS (1)
  - PENIS CARCINOMA [None]
